FAERS Safety Report 16312045 (Version 2)
Quarter: 2019Q2

REPORT INFORMATION
  Report Type: Spontaneous
  Country: JP (occurrence: JP)
  Receive Date: 20190515
  Receipt Date: 20190521
  Transmission Date: 20190711
  Serious: Yes (Hospitalization)
  Sender: FDA-Public Use
  Company Number: JP-TAKEDA-2019TJP010118

PATIENT
  Age: 55 Year
  Sex: Female

DRUGS (3)
  1. STERONEMA [Concomitant]
     Active Substance: BETAMETHASONE SODIUM PHOSPHATE
     Dosage: UNK
     Route: 065
  2. ENTYVIO [Suspect]
     Active Substance: VEDOLIZUMAB
     Indication: COLITIS ULCERATIVE
     Dosage: 300 MILLIGRAM
     Route: 041
     Dates: start: 20190320
  3. LIALDA [Concomitant]
     Active Substance: MESALAMINE
     Dosage: UNK
     Route: 065

REACTIONS (1)
  - Enterocolitis viral [Recovered/Resolved]

NARRATIVE: CASE EVENT DATE: 20190423
